FAERS Safety Report 4562915-3 (Version None)
Quarter: 2005Q1

REPORT INFORMATION
  Report Type: 
  Country: None (occurrence: None)
  Receive Date: 20050121
  Receipt Date: 20050114
  Transmission Date: 20050727
  Serious: Yes (Death)
  Sender: FDA-Public Use
  Company Number: 202039

PATIENT
  Age: 68 Year
  Sex: Female

DRUGS (10)
  1. RITUXAN [Suspect]
     Indication: B-CELL LYMPHOMA
     Dosage: 500 MG 2/MONTH INTRAVENOUS
     Route: 042
     Dates: start: 20030701, end: 20030708
  2. 2-CDA (2-CHLORODEOXYADENOSINE) [Suspect]
     Dosage: 2 MG INTRAVENOUS
     Route: 042
     Dates: start: 20030612, end: 20030616
  3. LEVOTHYROXIN (LEVOTHYROXINE SODIUM) [Concomitant]
  4. ANTIFUNGAL (ANTIFUNGAL AGENT NOS) [Concomitant]
  5. DOPAMINE HCL [Concomitant]
  6. GRANISETRON (GRANISETRON HYDROCHLORIDE) [Concomitant]
  7. DOBUTAMINE (DOBUTAMINE) [Concomitant]
  8. DEXAMETHASONE [Concomitant]
  9. IMIPENEM (IMIPENEM) [Concomitant]
  10. FUROSEMIDE(FUROSEMIDE) [Concomitant]

REACTIONS (16)
  - ALANINE AMINOTRANSFERASE INCREASED [None]
  - ANURIA [None]
  - ASPARTATE AMINOTRANSFERASE INCREASED [None]
  - BLOOD BILIRUBIN INCREASED [None]
  - BLOOD LACTATE DEHYDROGENASE INCREASED [None]
  - BLOOD PRESSURE DECREASED [None]
  - BLOOD UREA INCREASED [None]
  - CARDIAC FAILURE [None]
  - HAEMOSIDEROSIS [None]
  - HEPATIC CONGESTION [None]
  - HEPATIC FUNCTION ABNORMAL [None]
  - METABOLIC ACIDOSIS [None]
  - OLIGURIA [None]
  - PO2 DECREASED [None]
  - PULMONARY CONGESTION [None]
  - PYREXIA [None]
